FAERS Safety Report 9215812 (Version 1)
Quarter: 2013Q2

REPORT INFORMATION
  Report Type: Other
  Country: FR (occurrence: FR)
  Receive Date: 20130408
  Receipt Date: 20130408
  Transmission Date: 20140414
  Serious: Yes (Hospitalization)
  Sender: FDA-Public Use
  Company Number: FR-SHIRE-ALL1-2013-02074

PATIENT
  Age: 51 Year
  Sex: Female

DRUGS (6)
  1. XAGRID [Suspect]
     Indication: ESSENTIAL THROMBOCYTHAEMIA
     Dosage: 0.5 MG, 1X/DAY:QD (1 MG PER DAY)
     Route: 048
     Dates: start: 2003, end: 20130110
  2. KARDEGIC [Concomitant]
     Indication: PRODUCT USED FOR UNKNOWN INDICATION
     Dosage: UNK, UNKNOWN
     Route: 048
  3. KARDEGIC [Concomitant]
     Dosage: UNK, UNKNOWN (75)
     Route: 048
     Dates: start: 2013
  4. ATENOLOL [Concomitant]
     Indication: PRODUCT USED FOR UNKNOWN INDICATION
     Dosage: UNK, UNKNOWN
     Route: 065
  5. OLMETEC [Concomitant]
     Indication: PRODUCT USED FOR UNKNOWN INDICATION
     Dosage: UNK, UNKNOWN
     Route: 048
     Dates: end: 20130110
  6. SPIRONOLACTONE [Concomitant]
     Indication: PRODUCT USED FOR UNKNOWN INDICATION
     Dosage: UNK, UNKNOWN
     Route: 065
     Dates: end: 20130110

REACTIONS (11)
  - Bradycardia [Recovered/Resolved]
  - Hyperkalaemia [Recovered/Resolved]
  - Sinoatrial block [Recovered/Resolved]
  - Renal failure acute [Recovered/Resolved]
  - Dyspnoea [Unknown]
  - Chest discomfort [Not Recovered/Not Resolved]
  - Headache [Unknown]
  - Asthenia [Unknown]
  - Vertigo [Unknown]
  - Gastritis [Unknown]
  - Pyrexia [Unknown]
